FAERS Safety Report 20684680 (Version 1)
Quarter: 2022Q2

REPORT INFORMATION
  Report Type: Report from Study
  Country: CA (occurrence: CA)
  Receive Date: 20220407
  Receipt Date: 20220407
  Transmission Date: 20220721
  Serious: Yes (Death, Other)
  Sender: FDA-Public Use
  Company Number: CA-NOVARTISPH-NVSC2022CA079694

PATIENT
  Age: 40 Year
  Sex: Male

DRUGS (1)
  1. VOTRIENT [Suspect]
     Active Substance: PAZOPANIB HYDROCHLORIDE
     Indication: Soft tissue sarcoma
     Dosage: UNK
     Route: 048
     Dates: start: 20200218, end: 202011

REACTIONS (3)
  - Death [Fatal]
  - Soft tissue sarcoma [Unknown]
  - Malignant neoplasm progression [Unknown]

NARRATIVE: CASE EVENT DATE: 20210518
